FAERS Safety Report 6542947-6 (Version None)
Quarter: 2010Q1

REPORT INFORMATION
  Report Type: 
  Country: None (occurrence: None)
  Receive Date: 20100120
  Receipt Date: 20100105
  Transmission Date: 20100710
  Serious: Yes (Death)
  Sender: FDA-Public Use
  Company Number: US-TYCO HEALTHCARE/MALLINCKRODT-T201000028

PATIENT
  Age: 20 Year
  Sex: Male

DRUGS (3)
  1. FENTANYL [Suspect]
     Dosage: INHALATION OF 25 MCG PATCH
  2. METHADOSE [Suspect]
     Dosage: UNK
  3. CARISOPRODOL [Suspect]
     Dosage: UNK

REACTIONS (7)
  - AREFLEXIA [None]
  - CARDIO-RESPIRATORY ARREST [None]
  - DRUG ABUSE [None]
  - HEPATOTOXICITY [None]
  - MULTI-ORGAN FAILURE [None]
  - RENAL FAILURE ACUTE [None]
  - UNRESPONSIVE TO STIMULI [None]
